FAERS Safety Report 7047686-3 (Version None)
Quarter: 2010Q4

REPORT INFORMATION
  Report Type: 
  Country: None (occurrence: None)
  Receive Date: 20101015
  Receipt Date: 20090702
  Transmission Date: 20110411
  Serious: Yes (Hospitalization)
  Sender: FDA-Public Use
  Company Number: PHHY2009US66442

PATIENT
  Sex: Male

DRUGS (1)
  1. EXJADE [Suspect]
     Dosage: 500 MG, QD
     Route: 048

REACTIONS (9)
  - COMPRESSION STOCKINGS APPLICATION [None]
  - DIALYSIS [None]
  - DIARRHOEA [None]
  - FOOD POISONING [None]
  - INJURY [None]
  - NAUSEA [None]
  - OEDEMA PERIPHERAL [None]
  - RENAL DISORDER [None]
  - VOMITING PROJECTILE [None]
